FAERS Safety Report 5788426-5 (Version None)
Quarter: 2008Q2

REPORT INFORMATION
  Report Type: 
  Country: None (occurrence: None)
  Receive Date: 20080623
  Receipt Date: 20080609
  Transmission Date: 20081010
  Serious: Yes (Death)
  Sender: FDA-Public Use
  Company Number: 2008AL005142

PATIENT
  Age: 63 Year
  Sex: Male

DRUGS (3)
  1. DIGOXIN [Suspect]
     Indication: CARDIAC DISORDER
     Dosage: 0.25 MG DAILY PO
     Route: 048
  2. ATENOLOL [Concomitant]
  3. NITROGLYCERIN [Concomitant]

REACTIONS (2)
  - MALAISE [None]
  - ORGAN FAILURE [None]
